FAERS Safety Report 5391817-8 (Version None)
Quarter: 2007Q3

REPORT INFORMATION
  Report Type: 
  Country: None (occurrence: None)
  Receive Date: 20070718
  Receipt Date: 20070625
  Transmission Date: 20080115
  Serious: No
  Sender: FDA-Public Use
  Company Number: TPA2007A01369

PATIENT
  Age: 57 Year
  Sex: Female
  Weight: 67.1324 kg

DRUGS (4)
  1. ACTOPLUS MET [Suspect]
     Indication: TYPE 2 DIABETES MELLITUS
     Dosage: 15/850 MG BID, AM, 15/500 MG PM DAILY, PER ORAL, 15/850 MG, 3 IN 1 D, PER ORAL
     Route: 048
     Dates: start: 20070608
  2. GLIPIZIDE [Concomitant]
  3. VYTORIN [Concomitant]
  4. DIOVAN HCT [Concomitant]

REACTIONS (6)
  - DIZZINESS [None]
  - DYSPEPSIA [None]
  - HEADACHE [None]
  - HYPERSENSITIVITY [None]
  - NAUSEA [None]
  - VISUAL DISTURBANCE [None]
